APPROVED DRUG PRODUCT: TRIMETHOBENZAMIDE HYDROCHLORIDE
Active Ingredient: TRIMETHOBENZAMIDE HYDROCHLORIDE
Strength: 100MG/ML
Dosage Form/Route: INJECTABLE;INJECTION
Application: A219606 | Product #001 | TE Code: AP
Applicant: BPI LABS LLC
Approved: Oct 16, 2025 | RLD: No | RS: No | Type: RX